FAERS Safety Report 4502565-8 (Version None)
Quarter: 2004Q3

REPORT INFORMATION
  Report Type: 
  Country: None (occurrence: None)
  Receive Date: 20040928
  Receipt Date: 20040715
  Transmission Date: 20050211
  Serious: No
  Sender: FDA-Public Use
  Company Number: 04P-163-0267494-00

PATIENT
  Age: 57 Year
  Sex: Female
  Weight: 97.5234 kg

DRUGS (7)
  1. HUMIRA [Suspect]
     Indication: RHEUMATOID ARTHRITIS
     Dosage: 40 MG, 1 IN 2 WK, SUBCUTANEOUS
     Route: 058
     Dates: start: 20040201
  2. METHOTREXATE [Concomitant]
  3. MULTIVITAMIN [Concomitant]
  4. ACETYLSALICYLIC ACID SRT [Concomitant]
  5. CALCIUM [Concomitant]
  6. CONJUGATED ESTROGEN [Concomitant]
  7. ONDANSETRON HCL [Concomitant]

REACTIONS (1)
  - INJECTION SITE PAIN [None]
